FAERS Safety Report 11229364 (Version 2)
Quarter: 2015Q3

REPORT INFORMATION
  Report Type: Spontaneous
  Country: JP (occurrence: JP)
  Receive Date: 20150630
  Receipt Date: 20150707
  Transmission Date: 20151125
  Serious: Yes (Death, Other)
  Sender: FDA-Public Use
  Company Number: PHHY2015JP076572

PATIENT
  Age: 66 Year
  Sex: Female

DRUGS (4)
  1. VORICONAZOLE. [Suspect]
     Active Substance: VORICONAZOLE
     Indication: SCEDOSPORIUM INFECTION
     Dosage: 6 MG/KG, Q12H, FOR THE FIRST 24 H
     Route: 065
  2. VORICONAZOLE. [Suspect]
     Active Substance: VORICONAZOLE
     Dosage: 6 MG/KG, Q12H, FOR THE FIRST 24 H
     Route: 065
  3. AMPHOTERICIN B. [Suspect]
     Active Substance: AMPHOTERICIN B
     Indication: SCEDOSPORIUM INFECTION
     Dosage: 5 MG/KG, QD
     Route: 065
  4. TERBINAFINE. [Suspect]
     Active Substance: TERBINAFINE
     Indication: SCEDOSPORIUM INFECTION
     Dosage: 250 MG, Q12H
     Route: 065

REACTIONS (6)
  - Pneumonia [Unknown]
  - Cardiac arrest [Fatal]
  - Sinus node dysfunction [Fatal]
  - Multi-organ failure [Fatal]
  - Endocarditis [Unknown]
  - Hemiplegia [Unknown]
